FAERS Safety Report 5070828-6 (Version None)
Quarter: 2006Q3

REPORT INFORMATION
  Report Type: 
  Country: None (occurrence: None)
  Receive Date: 20060804
  Receipt Date: 20060508
  Transmission Date: 20061208
  Serious: No
  Sender: FDA-Public Use
  Company Number: US-GLAXOSMITHKLINE-A0604647A

PATIENT
  Age: 74 Year
  Sex: Female

DRUGS (1)
  1. TARGET NICOTINE GUM 4MG, MINT [Suspect]

REACTIONS (2)
  - INTENTIONAL DRUG MISUSE [None]
  - WEIGHT DECREASED [None]
